FAERS Safety Report 9100976 (Version 1)
Quarter: 2013Q1

REPORT INFORMATION
  Report Type: Spontaneous
  Country: US (occurrence: None)
  Receive Date: 20130220
  Receipt Date: 20130220
  Transmission Date: 20140127
  Serious: Yes (Other)
  Sender: FDA-Public Use
  Company Number: None

PATIENT
  Age: 29 Year
  Sex: Female
  Weight: 63.5 kg

DRUGS (1)
  1. CYMBALTA 20 MG LILLY [Suspect]
     Indication: FIBROMYALGIA
     Route: 048
     Dates: start: 20120406, end: 20120420

REACTIONS (2)
  - Dysuria [None]
  - Genital hypoaesthesia [None]
